FAERS Safety Report 6876509-8 (Version None)
Quarter: 2010Q3

REPORT INFORMATION
  Report Type: 
  Country: None (occurrence: None)
  Receive Date: 20100727
  Receipt Date: 20100713
  Transmission Date: 20110219
  Serious: Yes (Other)
  Sender: FDA-Public Use
  Company Number: US-CELGENEUS-163-21880-10071059

PATIENT
  Age: 67 Year
  Sex: Male
  Weight: 91 kg

DRUGS (7)
  1. REVLIMID [Suspect]
     Route: 048
     Dates: start: 20100628, end: 20100709
  2. REVLIMID [Suspect]
     Route: 048
     Dates: start: 20100111
  3. BORTEZOMIB [Suspect]
     Route: 048
     Dates: start: 20100111, end: 20100617
  4. DEXAMETHASONE [Suspect]
     Route: 048
     Dates: start: 20100628, end: 20100705
  5. DEXAMETHASONE [Suspect]
     Route: 048
     Dates: start: 20100111
  6. ZOMETA [Suspect]
     Indication: PRODUCT USED FOR UNKNOWN INDICATION
     Route: 065
  7. ASPIRIN [Concomitant]
     Indication: PRODUCT USED FOR UNKNOWN INDICATION
     Route: 048
     Dates: start: 20100111

REACTIONS (1)
  - OSTEONECROSIS OF JAW [None]
